FAERS Safety Report 26132197 (Version 2)
Quarter: 2025Q4

REPORT INFORMATION
  Report Type: Spontaneous
  Country: JP (occurrence: JP)
  Receive Date: 20251208
  Receipt Date: 20251224
  Transmission Date: 20260117
  Serious: Yes (Death, Other)
  Sender: PFIZER
  Company Number: JP-PFIZER INC-PV202500142956

PATIENT
  Age: 75 Year
  Sex: Male
  Weight: 87.4 kg

DRUGS (10)
  1. RHEUMATREX [Suspect]
     Active Substance: METHOTREXATE SODIUM
     Indication: Rheumatoid arthritis
     Dosage: 2 DF, WEEKLY AFTER BREAKFAST AND DINNER ON SUNDAY
     Route: 048
     Dates: start: 20210713, end: 20250307
  2. CANAGLIFLOZIN\TENELIGLIPTIN [Concomitant]
     Active Substance: CANAGLIFLOZIN\TENELIGLIPTIN
     Dosage: 1 TABLET, AFTER BREAKFAST
  3. ROSUVASTATIN TOWA [Concomitant]
     Dosage: 1 TABLET, AFTER BREAKFAST
  4. EDOXABAN TOSYLATE [Concomitant]
     Active Substance: EDOXABAN TOSYLATE
     Dosage: 1 TABLET, AFTER BREAKFAST
  5. METGLUCO [Concomitant]
     Active Substance: METFORMIN HYDROCHLORIDE
     Dosage: 2 TABLETS, AFTER BREAKFAST AND DINNER
  6. ZILMLO HD TOWA [Concomitant]
     Dosage: 1 TABLET, AFTER BREAKFAST
  7. FEBUXOSTAT [Concomitant]
     Active Substance: FEBUXOSTAT
     Dosage: 1 TABLET, AFTER BREAKFAST, ^TOWA^
  8. AZULFIDINE EN-TABS [Concomitant]
     Active Substance: SULFASALAZINE
     Dosage: 2 TABLETS, AFTER BREAKFAST AND DINNER
  9. FOLIC ACID [Concomitant]
     Active Substance: FOLIC ACID
     Dosage: 1 TABLET, AFTER BREAKFAST (ON MONDAY)
  10. PREDONINE [Concomitant]
     Active Substance: PREDNISOLONE
     Dosage: 1 TABLET, 1X/DAY

REACTIONS (6)
  - Bacteraemia [Fatal]
  - White blood cell count decreased [Recovered/Resolved]
  - Neutrophil count decreased [Recovered/Resolved]
  - Platelet count decreased [Recovered/Resolved]
  - Renal impairment [Not Recovered/Not Resolved]
  - C-reactive protein increased [Not Recovered/Not Resolved]

NARRATIVE: CASE EVENT DATE: 20250306
